FAERS Safety Report 20953177 (Version 3)
Quarter: 2022Q3

REPORT INFORMATION
  Report Type: Spontaneous
  Country: DE (occurrence: DE)
  Receive Date: 20220613
  Receipt Date: 20220826
  Transmission Date: 20221026
  Serious: Yes (Other)
  Sender: FDA-Public Use
  Company Number: DE-NOVARTISPH-NVSC2022DE134426

PATIENT
  Age: 32 Year
  Sex: Female
  Weight: 115 kg

DRUGS (4)
  1. KESIMPTA [Suspect]
     Active Substance: OFATUMUMAB
     Indication: Relapsing multiple sclerosis
     Dosage: 1 DOSAGE FORM, QMO (STOP DATE: 2022)
     Route: 058
     Dates: start: 20211026, end: 2022
  2. KESIMPTA [Suspect]
     Active Substance: OFATUMUMAB
     Dosage: 1 DOSAGE FORM, QMO
     Route: 058
     Dates: start: 20220621
  3. VITAMIN B12 [Concomitant]
     Active Substance: CYANOCOBALAMIN
     Indication: Product used for unknown indication
     Dosage: UNK
     Route: 058
  4. IRON [Concomitant]
     Active Substance: IRON
     Indication: Product used for unknown indication
     Dosage: UNK
     Route: 065

REACTIONS (3)
  - Neutropenia [Recovered/Resolved]
  - Viral infection [Unknown]
  - Aphthous ulcer [Unknown]

NARRATIVE: CASE EVENT DATE: 20220530
